FAERS Safety Report 6111632-7 (Version None)
Quarter: 2009Q1

REPORT INFORMATION
  Report Type: 
  Country: None (occurrence: None)
  Receive Date: 20090311
  Receipt Date: 20090305
  Transmission Date: 20090719
  Serious: Yes (Hospitalization)
  Sender: FDA-Public Use
  Company Number: FR-BRISTOL-MYERS SQUIBB COMPANY-14509160

PATIENT
  Age: 66 Year
  Sex: Female

DRUGS (4)
  1. SPRYCEL [Suspect]
     Indication: ACUTE LYMPHOCYTIC LEUKAEMIA
     Dosage: INTERRUPTED ON 11FEB2009.
     Route: 048
     Dates: start: 20081208
  2. CYTARABINE [Suspect]
     Dosage: 40 MG ADMINISTERED ON 31DEC08
     Route: 039
     Dates: start: 20090119, end: 20090120
  3. METHOTREXATE [Suspect]
     Dosage: ALSO ADMINISTERED ON 15JAN09, 31DEC08
     Route: 037
     Dates: start: 20090119, end: 20090120
  4. METHYLPREDNISOLONE 4MG TAB [Suspect]
     Dosage: 40 MG ADMINISTERD ON 31DEC08
     Route: 039
     Dates: start: 20090119, end: 20090120

REACTIONS (1)
  - PLEURAL EFFUSION [None]
